FAERS Safety Report 7939820-5 (Version None)
Quarter: 2011Q4

REPORT INFORMATION
  Report Type: 
  Country: None (occurrence: None)
  Receive Date: 20111125
  Receipt Date: 20111123
  Transmission Date: 20120403
  Serious: Yes (Death, Other)
  Sender: FDA-Public Use
  Company Number: PHHY2011PL86092

PATIENT
  Sex: Female

DRUGS (2)
  1. LHRH ANALOGUE [Concomitant]
     Dosage: 3.6 MG, UNK
  2. LETROZOLE [Suspect]
     Dosage: 2.5 MG, QD
     Route: 048
     Dates: start: 20070425, end: 20071003

REACTIONS (2)
  - NEOPLASM MALIGNANT [None]
  - NEOPLASM PROGRESSION [None]
